FAERS Safety Report 15142915 (Version 2)
Quarter: 2019Q1

REPORT INFORMATION
  Report Type: Spontaneous
  Country: LU (occurrence: LU)
  Receive Date: 20180713
  Receipt Date: 20190320
  Transmission Date: 20190417
  Serious: Yes (Death, Other)
  Sender: FDA-Public Use
  Company Number: LU-ABBVIE-18P-098-2280317-00

PATIENT
  Sex: Female

DRUGS (2)
  1. VENCLYXTO [Suspect]
     Active Substance: VENETOCLAX
     Indication: ACUTE LYMPHOCYTIC LEUKAEMIA
     Route: 048
  2. VENCLYXTO [Suspect]
     Active Substance: VENETOCLAX
     Indication: ACUTE LYMPHOCYTIC LEUKAEMIA

REACTIONS (6)
  - Incorrect dose administered [Unknown]
  - Toxicity to various agents [Unknown]
  - Wrong technique in product usage process [Unknown]
  - Off label use [Unknown]
  - Acute lymphocytic leukaemia [Fatal]
  - Haemolytic anaemia [Unknown]

NARRATIVE: CASE EVENT DATE: 201801
